FAERS Safety Report 6684308-5 (Version None)
Quarter: 2010Q2

REPORT INFORMATION
  Report Type: 
  Country: None (occurrence: None)
  Receive Date: 20100416
  Receipt Date: 20100406
  Transmission Date: 20101027
  Serious: Yes (Hospitalization)
  Sender: FDA-Public Use
  Company Number: PHHY2010MX21485

PATIENT
  Age: 99 Year
  Sex: Male

DRUGS (1)
  1. EXFORGE [Suspect]
     Indication: HYPERTENSION
     Dosage: 1 TABLET (160/5 MG) PER DAY
     Dates: start: 20100301

REACTIONS (3)
  - EATING DISORDER [None]
  - RESPIRATORY TRACT INFLAMMATION [None]
  - TRACHEAL OBSTRUCTION [None]
